FAERS Safety Report 4868092-3 (Version None)
Quarter: 2005Q4

REPORT INFORMATION
  Report Type: 
  Country: None (occurrence: None)
  Receive Date: 20051229
  Receipt Date: 20051118
  Transmission Date: 20060501
  Serious: Yes (Other)
  Sender: FDA-Public Use
  Company Number: PHMT2005CA00675

PATIENT
  Age: 42 Year
  Sex: Female

DRUGS (3)
  1. CLOZARIL [Suspect]
     Dosage: 300 MG, QD
     Dates: start: 20000401
  2. SEROQUEL [Concomitant]
     Dosage: 100 MG, UNK
     Dates: start: 20031201
  3. DIANE - 35 ^SCHERING AG^ [Concomitant]

REACTIONS (2)
  - LYMPHADENOPATHY [None]
  - LYMPHOMA [None]
